FAERS Safety Report 9584876 (Version 1)
Quarter: 2013Q4

REPORT INFORMATION
  Report Type: Spontaneous
  Country: US (occurrence: US)
  Receive Date: 20131002
  Receipt Date: 20131002
  Transmission Date: 20140711
  Serious: No
  Sender: FDA-Public Use
  Company Number: US-AMGEN-USASP2013056256

PATIENT
  Age: 54 Year
  Sex: Female
  Weight: 52.15 kg

DRUGS (13)
  1. ENBREL [Suspect]
     Indication: PRODUCT USED FOR UNKNOWN INDICATION
     Dosage: 50 MG, QWK
     Route: 058
  2. XELJANZ [Concomitant]
     Dosage: 5 MG, UNK
  3. FISH OIL [Concomitant]
     Dosage: UNK
  4. AMLODIPINE [Concomitant]
     Dosage: 2.5 MG, UNK
  5. MULTIVITAMIN                       /00097801/ [Concomitant]
     Dosage: UNK
  6. METHOTREXATE [Concomitant]
     Dosage: 2.5 MG, UNK
  7. CELEBREX [Concomitant]
     Dosage: 50 MG, UNK
  8. LOSARTAN POTASSIUM [Concomitant]
     Dosage: 100 MG, UNK
  9. SYNTHROID [Concomitant]
     Dosage: 50 MUG, UNK
  10. FOLIC ACID [Concomitant]
     Dosage: UNK
  11. ASTEPRO [Concomitant]
     Dosage: 0.15 %, UNK
  12. IRON FORMULA [Concomitant]
     Dosage: UNK
  13. CALCIUM [Concomitant]
     Dosage: 500, UNK

REACTIONS (1)
  - Therapeutic response decreased [Unknown]
